FAERS Safety Report 8964648 (Version 1)
Quarter: 2012Q4

REPORT INFORMATION
  Report Type: Report from Study
  Country: US (occurrence: US)
  Receive Date: 20121214
  Receipt Date: 20121214
  Transmission Date: 20130627
  Serious: Yes (Other)
  Sender: FDA-Public Use
  Company Number: US-ROCHE-649360

PATIENT
  Age: 71 Year
  Sex: Female
  Weight: 73.9 kg

DRUGS (2)
  1. CAPECITABINE [Suspect]
     Indication: COLORECTAL CANCER
     Dosage: STRENGTH: 500 MG; FREQUENCY: 4 TABS BID; THERAPY HELD
     Route: 048
     Dates: start: 20090619, end: 20090804
  2. CAPECITABINE [Suspect]
     Dosage: STRENGTH: 150 MG; FREQUENCY: 1 TAB BID
     Route: 048

REACTIONS (7)
  - Palmar-plantar erythrodysaesthesia syndrome [Recovering/Resolving]
  - Abasia [Recovering/Resolving]
  - Hepatic failure [Unknown]
  - Neoplasm [Unknown]
  - Disease progression [Unknown]
  - Hepatic enzyme increased [Unknown]
  - Stomatitis [Recovering/Resolving]
